FAERS Safety Report 20638334 (Version 1)
Quarter: 2022Q1

REPORT INFORMATION
  Report Type: Spontaneous
  Country: US (occurrence: US)
  Receive Date: 20220325
  Receipt Date: 20220325
  Transmission Date: 20220423
  Serious: Yes (Hospitalization, Other)
  Sender: FDA-Public Use
  Company Number: US-Fresenius Medical Care Renal Therapies Group-FMC-2203-000406

PATIENT
  Sex: Male

DRUGS (1)
  1. DELFLEX WITH DEXTROSE 2.5% LOW MAGNESIUM LOW CALCIUM [Suspect]
     Active Substance: CALCIUM CHLORIDE\DEXTROSE\MAGNESIUM CHLORIDE\SODIUM CHLORIDE\SODIUM LACTATE
     Indication: End stage renal disease
     Route: 033

REACTIONS (4)
  - Confusional state [Not Recovered/Not Resolved]
  - Peritonitis bacterial [Recovering/Resolving]
  - Hypocalcaemia [Unknown]
  - Fungal peritonitis [Unknown]

NARRATIVE: CASE EVENT DATE: 20220303
